FAERS Safety Report 10012120 (Version 5)
Quarter: 2014Q4

REPORT INFORMATION
  Report Type: Report from Study
  Country: TH (occurrence: TH)
  Receive Date: 20140314
  Receipt Date: 20141015
  Transmission Date: 20150528
  Serious: Yes (Hospitalization)
  Sender: FDA-Public Use
  Company Number: TH-B.I. PHARMACEUTICALS,INC./RIDGEFIELD-2012-CS-01691CS

PATIENT
  Age: 56 Year
  Sex: Female
  Weight: 35.8 kg

DRUGS (7)
  1. GLIPISIDE [Concomitant]
     Indication: DIABETES MELLITUS
     Dosage: 1*2
     Route: 065
  2. METFORMIN [Concomitant]
     Active Substance: METFORMIN HYDROCHLORIDE
     Indication: DIABETES MELLITUS
     Dosage: 1*2
     Route: 065
  3. CEF 4 [Concomitant]
     Indication: COLITIS
     Dosage: 4 G
     Route: 042
     Dates: start: 20121130, end: 20121204
  4. BIBW 2992 [Suspect]
     Active Substance: AFATINIB
     Dosage: 30 MG
     Route: 048
     Dates: start: 20121207
  5. TRIAL PROCEDURE [Suspect]
     Active Substance: UNSPECIFIED INGREDIENT
     Indication: INFLAMMATORY CARCINOMA OF THE BREAST
     Route: 065
  6. BIBW 2992 [Suspect]
     Active Substance: AFATINIB
     Indication: INFLAMMATORY CARCINOMA OF THE BREAST
     Dosage: 40 MG
     Route: 048
     Dates: start: 20121109, end: 20121123
  7. RI [Concomitant]
     Indication: DIABETES MELLITUS
     Dosage: 8 U
     Route: 050
     Dates: start: 20121124, end: 20121124

REACTIONS (7)
  - Renal failure [Recovered/Resolved]
  - Diarrhoea [Recovered/Resolved]
  - Haemorrhoids [Recovered/Resolved]
  - Prothrombin time prolonged [Recovered/Resolved]
  - Hyperglycaemia [Recovered/Resolved]
  - Hypokalaemia [Recovered/Resolved]
  - Hyperphosphataemia [Recovered/Resolved]

NARRATIVE: CASE EVENT DATE: 20121120
